FAERS Safety Report 10461001 (Version 1)
Quarter: 2014Q3

REPORT INFORMATION
  Report Type: Report from Study
  Country: MX (occurrence: MX)
  Receive Date: 20140918
  Receipt Date: 20140918
  Transmission Date: 20150326
  Serious: Yes (Death)
  Sender: FDA-Public Use
  Company Number: PHHY2014MX120662

PATIENT
  Age: 40 Year
  Sex: Male

DRUGS (2)
  1. GLIVEC [Suspect]
     Active Substance: IMATINIB MESYLATE
     Dosage: 800 MG, UNK
     Dates: start: 20140716
  2. GLIVEC [Suspect]
     Active Substance: IMATINIB MESYLATE
     Indication: CHRONIC MYELOID LEUKAEMIA
     Dosage: 600 MG, UNK
     Dates: start: 20050120

REACTIONS (1)
  - Death [Fatal]

NARRATIVE: CASE EVENT DATE: 201312
